FAERS Safety Report 12197561 (Version 5)
Quarter: 2016Q2

REPORT INFORMATION
  Report Type: Spontaneous
  Country: GB (occurrence: GB)
  Receive Date: 20160322
  Receipt Date: 20160511
  Transmission Date: 20160815
  Serious: Yes (Hospitalization, Other)
  Sender: FDA-Public Use
  Company Number: GB-HOSPIRA-3212175

PATIENT
  Age: 46 Year
  Sex: Female
  Weight: 59.3 kg

DRUGS (8)
  1. FLUOROURACIL. [Suspect]
     Active Substance: FLUOROURACIL
     Indication: BREAST CANCER
  2. CYCLOPHOSPHAMIDE. [Suspect]
     Active Substance: CYCLOPHOSPHAMIDE
     Indication: BREAST CANCER
  3. METOCLOPRAMIDE. [Concomitant]
     Active Substance: METOCLOPRAMIDE
     Indication: PRODUCT USED FOR UNKNOWN INDICATION
  4. DEXAMETHASONE. [Concomitant]
     Active Substance: DEXAMETHASONE
     Indication: PRODUCT USED FOR UNKNOWN INDICATION
  5. EPIRUBICIN HYDROCHLORIDE. [Suspect]
     Active Substance: EPIRUBICIN HYDROCHLORIDE
     Indication: BREAST CANCER
  6. NEULASTA [Suspect]
     Active Substance: PEGFILGRASTIM
     Indication: BREAST CANCER
  7. EMEND [Suspect]
     Active Substance: APREPITANT
     Indication: BREAST CANCER
  8. TAXOTERE [Suspect]
     Active Substance: DOCETAXEL
     Indication: BREAST CANCER

REACTIONS (36)
  - Oropharyngeal pain [Unknown]
  - Sinus headache [Unknown]
  - Drug hypersensitivity [Unknown]
  - Pain [Recovered/Resolved]
  - Abdominal discomfort [Recovered/Resolved]
  - Irritability [Unknown]
  - Decreased appetite [Unknown]
  - Alopecia [Not Recovered/Not Resolved]
  - Weight decreased [Unknown]
  - Catheter site related reaction [Not Recovered/Not Resolved]
  - Constipation [Not Recovered/Not Resolved]
  - Paranasal sinus discomfort [Unknown]
  - Flatulence [Unknown]
  - Dyspepsia [Unknown]
  - Tongue coated [Recovered/Resolved]
  - Fatigue [Unknown]
  - Pyrexia [Recovered/Resolved]
  - Insomnia [Not Recovered/Not Resolved]
  - Allodynia [Unknown]
  - Oral pain [Unknown]
  - Increased appetite [Not Recovered/Not Resolved]
  - Liver function test increased [Not Recovered/Not Resolved]
  - Hepatic enzyme increased [Unknown]
  - Diarrhoea [Recovered/Resolved]
  - Abdominal pain upper [Unknown]
  - Catheter site erythema [Unknown]
  - Catheter site pain [Not Recovered/Not Resolved]
  - Nasopharyngitis [Not Recovered/Not Resolved]
  - Dry skin [Not Recovered/Not Resolved]
  - Muscular weakness [Unknown]
  - Abdominal distension [Unknown]
  - Dry mouth [Unknown]
  - Sputum discoloured [Unknown]
  - Malaise [Unknown]
  - Oral candidiasis [Unknown]
  - Nausea [Not Recovered/Not Resolved]

NARRATIVE: CASE EVENT DATE: 201602
